FAERS Safety Report 25912233 (Version 1)
Quarter: 2025Q4

REPORT INFORMATION
  Report Type: Spontaneous
  Country: EU (occurrence: EU)
  Receive Date: 20251013
  Receipt Date: 20251013
  Transmission Date: 20260118
  Serious: Yes (Hospitalization)
  Sender: ALKEM
  Company Number: EU-ALKEM LABORATORIES LIMITED-DE-ALKEM-2025-10799

PATIENT
  Sex: Male

DRUGS (1)
  1. GABAPENTIN [Suspect]
     Active Substance: GABAPENTIN
     Indication: Product used for unknown indication
     Dosage: UNK (CAPSULE, HARD)
     Route: 048

REACTIONS (6)
  - Tongue eruption [Unknown]
  - Skin reaction [Unknown]
  - Rash erythematous [Unknown]
  - Pruritus [Unknown]
  - Swelling [Unknown]
  - Pain [Unknown]
